FAERS Safety Report 12651614 (Version 1)
Quarter: 2016Q3

REPORT INFORMATION
  Report Type: Spontaneous
  Country: US (occurrence: None)
  Receive Date: 20160812
  Receipt Date: 20160812
  Transmission Date: 20161109
  Serious: No
  Sender: FDA-Public Use
  Company Number: None

PATIENT
  Age: 60 Year
  Sex: Male
  Weight: 76.7 kg

DRUGS (1)
  1. ETOPOSIDE. [Suspect]
     Active Substance: ETOPOSIDE
     Dates: start: 20160802

REACTIONS (3)
  - Dyspnoea [None]
  - Chest discomfort [None]
  - Bronchospasm [None]

NARRATIVE: CASE EVENT DATE: 20160802
